FAERS Safety Report 8470264-6 (Version None)
Quarter: 2012Q2

REPORT INFORMATION
  Report Type: 
  Country: None (occurrence: None)
  Receive Date: 20120621
  Receipt Date: 20120621
  Transmission Date: 20120825
  Serious: Yes (Life-Threatening, Hospitalization, Other)
  Sender: FDA-Public Use
  Company Number: None

PATIENT
  Age: 77 Year
  Sex: Female
  Weight: 65.7716 kg

DRUGS (2)
  1. CLINDAMYCIN HCL [Suspect]
  2. CLINDAMYCIN HCL [Suspect]
     Indication: TOOTHACHE
     Dosage: 300 MG EVER 6 HR
     Dates: start: 20111101, end: 20120101

REACTIONS (2)
  - CLOSTRIDIAL INFECTION [None]
  - DIARRHOEA [None]
